FAERS Safety Report 6075605-5 (Version None)
Quarter: 2009Q1

REPORT INFORMATION
  Report Type: 
  Country: None (occurrence: None)
  Receive Date: 20090210
  Receipt Date: 20090210
  Transmission Date: 20090719
  Serious: Yes (Hospitalization)
  Sender: FDA-Public Use
  Company Number: None

PATIENT
  Sex: Female
  Weight: 64 kg

DRUGS (2)
  1. CYCLOPHOSPHAMIDE [Suspect]
     Dosage: 960 MG
  2. TAXOTERE [Suspect]
     Dosage: 129 NG

REACTIONS (6)
  - ABDOMINAL PAIN [None]
  - BACTERAEMIA [None]
  - CONSTIPATION [None]
  - DISCOMFORT [None]
  - GASTROINTESTINAL INFLAMMATION [None]
  - GRANULOCYTOPENIA [None]
